FAERS Safety Report 11488334 (Version 1)
Quarter: 2015Q3

REPORT INFORMATION
  Report Type: Spontaneous
  Country: US (occurrence: US)
  Receive Date: 20150910
  Receipt Date: 20150910
  Transmission Date: 20151125
  Serious: No
  Sender: FDA-Public Use
  Company Number: US-ROCHE-1478751

PATIENT
  Sex: Female

DRUGS (3)
  1. SOVALDI [Suspect]
     Active Substance: SOFOSBUVIR
     Indication: CHRONIC HEPATITIS C
     Route: 065
     Dates: start: 20140527
  2. RIBAVIRIN. [Suspect]
     Active Substance: RIBAVIRIN
     Indication: CHRONIC HEPATITIS C
     Dosage: 800 MG/DAY DIVIDED DOSES ORALLY 600/200
     Route: 048
     Dates: start: 20140527
  3. PEGASYS [Suspect]
     Active Substance: PEGINTERFERON ALFA-2A
     Indication: CHRONIC HEPATITIS C
     Dosage: UNKNOWN MCG/WK SUBCUTANEOUSLY.?LAST INJECTION ON OR ABOUT 19/AUG/2014.
     Route: 058
     Dates: start: 20140527

REACTIONS (3)
  - Alopecia [Unknown]
  - Malaise [Unknown]
  - White blood cell count decreased [Unknown]
